FAERS Safety Report 16068118 (Version 4)
Quarter: 2019Q2

REPORT INFORMATION
  Report Type: Report from Study
  Country: DE (occurrence: DE)
  Receive Date: 20190313
  Receipt Date: 20190501
  Transmission Date: 20190711
  Serious: Yes (Death, Hospitalization, Other)
  Sender: FDA-Public Use
  Company Number: DE-INCYTE CORPORATION-2019IN001545

PATIENT

DRUGS (3)
  1. INCB018424 [Suspect]
     Active Substance: RUXOLITINIB
     Dosage: 15 MG, PER DAY
     Route: 048
     Dates: start: 20180611, end: 20181029
  2. INCB018424 [Suspect]
     Active Substance: RUXOLITINIB
     Indication: PRIMARY MYELOFIBROSIS
     Dosage: 10 MG, PER DAY
     Route: 048
     Dates: start: 20180410
  3. INCB018424 [Suspect]
     Active Substance: RUXOLITINIB
     Dosage: 20 MG, PER DAY
     Route: 048
     Dates: start: 20181116, end: 20181122

REACTIONS (7)
  - Sepsis [Recovered/Resolved]
  - Metastases to skin [Unknown]
  - Fatigue [Fatal]
  - Transformation to acute myeloid leukaemia [Fatal]
  - Pneumonia fungal [Recovered/Resolved]
  - Pyrexia [Fatal]
  - Ascites [Fatal]

NARRATIVE: CASE EVENT DATE: 20181122
